FAERS Safety Report 5158783-1 (Version None)
Quarter: 2006Q4

REPORT INFORMATION
  Report Type: 
  Country: None (occurrence: None)
  Receive Date: 20061128
  Receipt Date: 20060825
  Transmission Date: 20070319
  Serious: Yes (Other)
  Sender: FDA-Public Use
  Company Number: CA-ELI_LILLY_AND_COMPANY-CA200608006648

PATIENT
  Sex: Female

DRUGS (6)
  1. FORTEO [Suspect]
     Indication: OSTEOPOROSIS
     Dosage: 20 UG, DAILY (1/D)
     Dates: start: 20051123
  2. ADVAIR DISKUS 100/50 [Concomitant]
  3. SPIRIVA [Concomitant]
  4. DIURETICS [Concomitant]
  5. VITAMIN D [Concomitant]
     Dosage: UNK, UNK
     Dates: end: 20060801
  6. CALCIUM [Concomitant]
     Dosage: UNK, UNK
     Dates: end: 20060801

REACTIONS (7)
  - BLOOD PRESSURE INCREASED [None]
  - DECREASED APPETITE [None]
  - DIARRHOEA [None]
  - DYSPEPSIA [None]
  - HEADACHE [None]
  - URINE CALCIUM [None]
  - WEIGHT DECREASED [None]
